FAERS Safety Report 20846911 (Version 7)
Quarter: 2023Q2

REPORT INFORMATION
  Report Type: Report from Study
  Country: US (occurrence: US)
  Receive Date: 20220519
  Receipt Date: 20230414
  Transmission Date: 20230721
  Serious: Yes (Other)
  Sender: FDA-Public Use
  Company Number: US-NOVARTISTESTPH-NVSC2022US114797

PATIENT
  Sex: Female

DRUGS (2)
  1. MYFORTIC [Suspect]
     Active Substance: MYCOPHENOLATE SODIUM
     Indication: Product used for unknown indication
     Dosage: 540 MG, BID
     Route: 065
     Dates: start: 202103
  2. WELLBUTRIN [Concomitant]
     Active Substance: BUPROPION HYDROCHLORIDE
     Indication: Product used for unknown indication
     Dosage: UNK
     Route: 065

REACTIONS (15)
  - Blindness [Unknown]
  - Alopecia [Unknown]
  - Gait disturbance [Unknown]
  - Chest pain [Unknown]
  - Rhinorrhoea [Unknown]
  - Pain in extremity [Unknown]
  - Chills [Unknown]
  - Dysgeusia [Unknown]
  - Pyrexia [Unknown]
  - Arthralgia [Unknown]
  - COVID-19 [Unknown]
  - Anosmia [Unknown]
  - Ageusia [Unknown]
  - Pain [Unknown]
  - Incorrect dose administered [Unknown]
